FAERS Safety Report 24391286 (Version 2)
Quarter: 2024Q4

REPORT INFORMATION
  Report Type: Spontaneous
  Country: KR (occurrence: KR)
  Receive Date: 20241003
  Receipt Date: 20241112
  Transmission Date: 20250115
  Serious: Yes (Hospitalization, Other)
  Sender: PFIZER
  Company Number: KR-PFIZER INC-PV202400073741

PATIENT
  Age: 10 Year
  Sex: Female

DRUGS (4)
  1. NGENLA [Suspect]
     Active Substance: SOMATROGON-GHLA
     Dosage: 12 MG, WEEKLY
     Route: 058
     Dates: start: 20240528, end: 2024
  2. NGENLA [Suspect]
     Active Substance: SOMATROGON-GHLA
     Dosage: 12 MG, WEEKLY
     Route: 058
  3. NGENLA [Suspect]
     Active Substance: SOMATROGON-GHLA
     Dosage: 15 MG, WEEKLY
     Route: 058
     Dates: start: 20241001
  4. NGENLA [Suspect]
     Active Substance: SOMATROGON-GHLA
     Dosage: 15 MG, WEEKLY (RECEIVED ONLY 12MG)
     Route: 058
     Dates: start: 20241106

REACTIONS (5)
  - Pneumonia mycoplasmal [Recovering/Resolving]
  - Pyrexia [Recovered/Resolved]
  - Influenza [Recovered/Resolved]
  - Nasopharyngitis [Unknown]
  - Intentional product misuse [Unknown]

NARRATIVE: CASE EVENT DATE: 20240604
